FAERS Safety Report 21931492 (Version 4)
Quarter: 2023Q4

REPORT INFORMATION
  Report Type: Spontaneous
  Country: US (occurrence: US)
  Receive Date: 20230131
  Receipt Date: 20231117
  Transmission Date: 20240109
  Serious: Yes (Death)
  Sender: FDA-Public Use
  Company Number: US-PFIZER INC-PV202300019386

PATIENT
  Age: 80 Year
  Sex: Male
  Weight: 81.65 kg

DRUGS (3)
  1. VYNDAMAX [Suspect]
     Active Substance: TAFAMIDIS
     Indication: Cardiac amyloidosis
     Dosage: UNKNOWN DOSE, ONCE A DAY BY MOUTH
     Route: 048
     Dates: start: 2022
  2. MORPHINE SULFATE [Concomitant]
     Active Substance: MORPHINE SULFATE
     Indication: Pain
     Dosage: UNK
  3. ATIVAN [Concomitant]
     Active Substance: LORAZEPAM
     Indication: Pain
     Dosage: UNK

REACTIONS (2)
  - Disease progression [Fatal]
  - Hypoacusis [Unknown]
